FAERS Safety Report 6718986-9 (Version None)
Quarter: 2010Q2

REPORT INFORMATION
  Report Type: 
  Country: None (occurrence: None)
  Receive Date: 20100507
  Receipt Date: 20100419
  Transmission Date: 20101027
  Serious: Yes (Life-Threatening, Other)
  Sender: FDA-Public Use
  Company Number: 20100175

PATIENT
  Age: 30 Year
  Sex: Female

DRUGS (1)
  1. VASOPRESSIN        INJECTION, USP [Suspect]
     Indication: POST PROCEDURAL HAEMORRHAGE
     Dosage: 6 UNITS, 20 UNITS/ML

REACTIONS (6)
  - ELECTROCARDIOGRAM ST SEGMENT DEPRESSION [None]
  - HEART RATE DECREASED [None]
  - HYPOTENSION [None]
  - INCORRECT ROUTE OF DRUG ADMINISTRATION [None]
  - PULSE ABSENT [None]
  - VENTRICULAR ARRHYTHMIA [None]
